FAERS Safety Report 5432249-3 (Version None)
Quarter: 2007Q3

REPORT INFORMATION
  Report Type: 
  Country: None (occurrence: None)
  Receive Date: 20070830
  Receipt Date: 20060911
  Transmission Date: 20080115
  Serious: Yes (Hospitalization)
  Sender: FDA-Public Use
  Company Number: FR-PFIZER INC-2007069461

PATIENT
  Age: 65 Year
  Sex: Male

DRUGS (9)
  1. VIBRAMYCIN [Suspect]
     Route: 048
     Dates: start: 20060812, end: 20060817
  2. BACTRIM [Suspect]
     Route: 042
     Dates: start: 20060810, end: 20060812
  3. CIPROFLOXACIN HCL [Suspect]
     Route: 048
     Dates: start: 20060731, end: 20060808
  4. CANCIDAS [Suspect]
     Dosage: DAILY DOSE:500MG
     Route: 042
     Dates: start: 20060729, end: 20060817
  5. POSACONAZOLE [Suspect]
     Dosage: DAILY DOSE:200MG
     Route: 048
     Dates: start: 20060817, end: 20060819
  6. FORTUM [Suspect]
     Dosage: DAILY DOSE:2GRAM
     Route: 048
  7. AMIKLIN [Concomitant]
  8. TARGOCID [Concomitant]
  9. VFEND [Concomitant]

REACTIONS (2)
  - JAUNDICE [None]
  - TRANSAMINASES INCREASED [None]
